FAERS Safety Report 4871533-9 (Version None)
Quarter: 2005Q4

REPORT INFORMATION
  Report Type: 
  Country: None (occurrence: None)
  Receive Date: 20051229
  Receipt Date: 20051216
  Transmission Date: 20060501
  Serious: Yes (Other)
  Sender: FDA-Public Use
  Company Number: US200512002839

PATIENT
  Age: 64 Year
  Sex: Female
  Weight: 54.4 kg

DRUGS (3)
  1. HUMULIN LENTE (HUMAN INSULIN (RDNA ORIGNI) LENTE) VIAL [Suspect]
     Indication: DIABETES MELLITUS
     Dosage: 24 U, EACH MORNING,
  2. HUMULIN R [Suspect]
     Indication: DIABETES MELLITUS
     Dosage: AS NEEDED
  3. NOVOLIN L (INSULIN HUMAN ZINC SUSPENSION) [Concomitant]

REACTIONS (6)
  - BACK PAIN [None]
  - BELLIGERENCE [None]
  - DISTURBANCE IN ATTENTION [None]
  - HYPOGLYCAEMIA [None]
  - PAIN [None]
  - ROAD TRAFFIC ACCIDENT [None]
